FAERS Safety Report 9695309 (Version 2)
Quarter: 2020Q3

REPORT INFORMATION
  Report Type: Report from Study
  Country: JP (occurrence: JP)
  Receive Date: 20131119
  Receipt Date: 20131127
  Transmission Date: 20201105
  Serious: Yes (Death, Hospitalization, Other)
  Sender: FDA-Public Use
  Company Number: JP-ASTELLAS-2013US012089

PATIENT
  Age: 63 Year
  Sex: Male

DRUGS (8)
  1. ONARTUZUMAB. [Suspect]
     Active Substance: ONARTUZUMAB
     Indication: NON-SMALL CELL LUNG CANCER
     Dosage: 1017 MG, Q3W
     Route: 041
     Dates: start: 20130906, end: 20130927
  2. PRIMPERAN [Concomitant]
     Active Substance: METOCLOPRAMIDE HYDROCHLORIDE
     Indication: NAUSEA
     Dosage: 5 MG, TID
     Route: 048
     Dates: start: 20130927
  3. MEDICON                            /00048102/ [Concomitant]
     Indication: COUGH
     Dosage: 15 MG, UNKNOWN/D
     Route: 048
     Dates: start: 201306
  4. UREPEARL [Concomitant]
     Active Substance: UREA
     Indication: DRY SKIN
     Dosage: UNK
     Route: 003
     Dates: start: 20130920
  5. SOLANAX [Concomitant]
     Active Substance: ALPRAZOLAM
     Indication: NAUSEA
     Dosage: 0.4 MG, UID/QD
     Route: 048
     Dates: start: 20130927
  6. ERLOTINIB TABLET [Suspect]
     Active Substance: ERLOTINIB
     Indication: NON-SMALL CELL LUNG CANCER
     Dosage: 150 MG, UID/QD
     Route: 048
     Dates: start: 20130906, end: 20131004
  7. ALMETA [Concomitant]
     Active Substance: ALCLOMETASONE DIPROPIONATE
     Indication: RASH
     Dosage: SPREADING ON TWICE IN A DAY
     Route: 003
     Dates: start: 20130912
  8. ANTEBATE [Concomitant]
     Active Substance: BETAMETHASONE DIPROPIONATE
     Indication: DERMATITIS ACNEIFORM
     Dosage: UNK
     Route: 003
     Dates: start: 20130912

REACTIONS (7)
  - Dehydration [Fatal]
  - Vomiting [Unknown]
  - Malignant neoplasm progression [Fatal]
  - Depressed level of consciousness [Not Recovered/Not Resolved]
  - Decreased appetite [Not Recovered/Not Resolved]
  - Weight decreased [Not Recovered/Not Resolved]
  - Nausea [Not Recovered/Not Resolved]

NARRATIVE: CASE EVENT DATE: 20130920
